FAERS Safety Report 9194341 (Version 1)
Quarter: 2013Q1

REPORT INFORMATION
  Report Type: Spontaneous
  Country: US (occurrence: US)
  Receive Date: 20130326
  Receipt Date: 20130326
  Transmission Date: 20140127
  Serious: Yes (Hospitalization, Other)
  Sender: FDA-Public Use
  Company Number: US-RB-051388-13

PATIENT
  Age: 37 Year
  Sex: Female

DRUGS (4)
  1. SUBOXONE TABLET [Suspect]
     Indication: HEADACHE
     Route: 060
  2. SUBOXONE TABLET [Suspect]
     Indication: HEADACHE
     Route: 060
  3. ZANAFLEX [Concomitant]
     Indication: MUSCLE RELAXANT THERAPY
     Dosage: DOSING DETAILS UNKNOWN
     Route: 065
  4. TYLENOL [Concomitant]
     Indication: HEADACHE
     Dosage: DOSING DETAILS UNKNOWN
     Route: 048

REACTIONS (5)
  - Wrong technique in drug usage process [Not Recovered/Not Resolved]
  - Uterine disorder [Recovered/Resolved]
  - Drug hypersensitivity [Recovered/Resolved]
  - Drug withdrawal syndrome [Recovered/Resolved]
  - Off label use [Not Recovered/Not Resolved]
